FAERS Safety Report 7476150-2 (Version None)
Quarter: 2011Q2

REPORT INFORMATION
  Report Type: 
  Country: None (occurrence: None)
  Receive Date: 20110510
  Receipt Date: 20110510
  Transmission Date: 20111010
  Serious: Yes (Hospitalization)
  Sender: FDA-Public Use
  Company Number: None

PATIENT
  Age: 57 Year
  Sex: Female

DRUGS (7)
  1. ALLEGRA D 24 HOUR [Concomitant]
  2. CEFDINIR [Suspect]
     Indication: UPPER RESPIRATORY TRACT INFECTION
     Dosage: PO
     Route: 048
  3. NEXIUM [Concomitant]
  4. LEVOTHROID [Concomitant]
  5. ZOCOR [Concomitant]
  6. ASTELIN [Concomitant]
  7. OSCAL [Concomitant]

REACTIONS (1)
  - DIARRHOEA [None]
